FAERS Safety Report 4513039-2 (Version None)
Quarter: 2004Q4

REPORT INFORMATION
  Report Type: 
  Country: None (occurrence: None)
  Receive Date: 20041124
  Receipt Date: 20041116
  Transmission Date: 20050328
  Serious: Yes (Life-Threatening)
  Sender: FDA-Public Use
  Company Number: 2004UW23710

PATIENT
  Age: 55 Year
  Sex: Male
  Weight: 72 kg

DRUGS (2)
  1. IRESSA [Suspect]
     Indication: CARCINOMA
     Dosage: 250 MG PO
     Route: 048
     Dates: start: 20040830, end: 20041026
  2. HYDREA [Concomitant]

REACTIONS (13)
  - ANAEMIA [None]
  - ASPIRATION [None]
  - COAGULOPATHY [None]
  - ENCEPHALOPATHY [None]
  - INFECTION IN AN IMMUNOCOMPROMISED HOST [None]
  - PNEUMONIA [None]
  - PNEUMONIA KLEBSIELLA [None]
  - RESPIRATORY FAILURE [None]
  - SEPSIS [None]
  - SERRATIA INFECTION [None]
  - STAPHYLOCOCCAL INFECTION [None]
  - STENOTROPHOMONAS INFECTION [None]
  - URINE OUTPUT DECREASED [None]
